FAERS Safety Report 16891792 (Version 1)
Quarter: 2019Q4

REPORT INFORMATION
  Report Type: Report from Study
  Country: US (occurrence: US)
  Receive Date: 20191007
  Receipt Date: 20191007
  Transmission Date: 20200122
  Serious: Yes (Hospitalization)
  Sender: FDA-Public Use
  Company Number: US-BAYER-2019-178324

PATIENT
  Age: 78 Year
  Sex: Female
  Weight: 62.59 kg

DRUGS (1)
  1. ADEMPAS [Suspect]
     Active Substance: RIOCIGUAT
     Indication: PULMONARY ARTERIAL HYPERTENSION
     Dosage: 0.5 MG, TID
     Route: 048

REACTIONS (9)
  - Hospitalisation [Unknown]
  - Hypotension [Unknown]
  - Joint swelling [Unknown]
  - Blood pressure increased [None]
  - Dyspnoea exertional [Unknown]
  - Dry skin [Unknown]
  - Malaise [Unknown]
  - Headache [Unknown]
  - Peripheral swelling [None]

NARRATIVE: CASE EVENT DATE: 201901
